FAERS Safety Report 5401129-1 (Version None)
Quarter: 2007Q3

REPORT INFORMATION
  Report Type: 
  Country: None (occurrence: None)
  Receive Date: 20070731
  Receipt Date: 20070723
  Transmission Date: 20080115
  Serious: Yes (Other)
  Sender: FDA-Public Use
  Company Number: PHBS2007JP09379

PATIENT
  Age: 23 Month
  Sex: Male
  Weight: 11 kg

DRUGS (3)
  1. TEGRETOL [Suspect]
     Indication: EPILEPSY
     Dosage: 75 MG, BID
     Route: 048
     Dates: start: 20060428
  2. MYSTAN [Concomitant]
     Indication: EPILEPSY
     Dosage: 8 MG, QD
     Route: 048
     Dates: start: 20060911
  3. SELENICA-R [Concomitant]
     Indication: EPILEPSY
     Dosage: 50 MG, BID
     Route: 048
     Dates: start: 20070523

REACTIONS (4)
  - CHOREOATHETOSIS [None]
  - DEVELOPMENTAL DELAY [None]
  - DRUG INEFFECTIVE [None]
  - DYSKINESIA [None]
